FAERS Safety Report 4503354-0 (Version None)
Quarter: 2004Q4

REPORT INFORMATION
  Report Type: 
  Country: None (occurrence: None)
  Receive Date: 20041112
  Receipt Date: 20041027
  Transmission Date: 20050328
  Serious: Yes (Other)
  Sender: FDA-Public Use
  Company Number: S04-GER-07471-01

PATIENT
  Sex: Female

DRUGS (1)
  1. CIPRALEX (ESCITALOPRAM) [Suspect]
     Indication: DEPRESSION
     Dosage: 5 MG QD PO
     Route: 048
     Dates: start: 20041023, end: 20041024

REACTIONS (5)
  - C-REACTIVE PROTEIN INCREASED [None]
  - DELIRIUM [None]
  - HALLUCINATION, VISUAL [None]
  - INFECTION [None]
  - SEROTONIN SYNDROME [None]
